FAERS Safety Report 6545532-5 (Version None)
Quarter: 2010Q1

REPORT INFORMATION
  Report Type: 
  Country: None (occurrence: None)
  Receive Date: 20100121
  Receipt Date: 20100113
  Transmission Date: 20100710
  Serious: Yes (Death, Hospitalization)
  Sender: FDA-Public Use
  Company Number: JP-PFIZER INC-2010002449

PATIENT
  Age: 71 Year
  Sex: Male

DRUGS (1)
  1. ZYVOX [Suspect]
     Indication: STAPHYLOCOCCAL INFECTION
     Dosage: 1200, MG TDD
     Route: 042
     Dates: start: 20091220, end: 20091228

REACTIONS (2)
  - MEDIASTINITIS [None]
  - THROMBOCYTOPENIA [None]
